FAERS Safety Report 6746062-8 (Version None)
Quarter: 2010Q2

REPORT INFORMATION
  Report Type: 
  Country: None (occurrence: None)
  Receive Date: 20100528
  Receipt Date: 20100517
  Transmission Date: 20101027
  Serious: Yes (Other)
  Sender: FDA-Public Use
  Company Number: US-SANOFI-AVENTIS-A03200904302

PATIENT
  Age: 41 Year
  Sex: Male
  Weight: 104.54 kg

DRUGS (3)
  1. AMBIEN [Suspect]
     Route: 048
     Dates: start: 20090701
  2. VALIUM [Concomitant]
  3. PERCOCET [Concomitant]

REACTIONS (5)
  - HAEMATOMA [None]
  - HEADACHE [None]
  - LACERATION [None]
  - LOSS OF CONSCIOUSNESS [None]
  - ROAD TRAFFIC ACCIDENT [None]
